FAERS Safety Report 5678789-3 (Version None)
Quarter: 2008Q1

REPORT INFORMATION
  Report Type: 
  Country: None (occurrence: None)
  Receive Date: 20080321
  Receipt Date: 20080310
  Transmission Date: 20080703
  Serious: Yes (Hospitalization, Other)
  Sender: FDA-Public Use
  Company Number: 2008-00831

PATIENT
  Age: 65 Year
  Sex: Female
  Weight: 83.9 kg

DRUGS (11)
  1. VELCADE [Suspect]
     Indication: MULTIPLE MYELOMA
     Dosage: 1.00 MG/M2, IV BOLUS
     Route: 040
     Dates: start: 20070301, end: 20070919
  2. VELCADE [Suspect]
     Indication: MULTIPLE MYELOMA
     Dosage: 1.00 MG/M2, IV BOLUS
     Route: 040
     Dates: start: 20080114
  3. AREDIA [Concomitant]
  4. HYDRALAZINE HCL [Concomitant]
  5. TOPROL-XL [Concomitant]
  6. STROVITE (THIAMINE, PYRIDOXINE, RIBOFLAVIN, PANTOTHENIC ACID, CYANOCOB [Concomitant]
  7. NEURONTIN [Concomitant]
  8. FENTANYL [Concomitant]
  9. ASPIRIN [Concomitant]
  10. IRON (IRON) [Concomitant]
  11. PROCRIT [Concomitant]

REACTIONS (6)
  - ANAEMIA [None]
  - ANGINA PECTORIS [None]
  - BRONCHITIS [None]
  - FEELING HOT [None]
  - MYOCARDIAL ISCHAEMIA [None]
  - NEUROPATHY PERIPHERAL [None]
